FAERS Safety Report 4773348-9 (Version None)
Quarter: 2005Q3

REPORT INFORMATION
  Report Type: 
  Country: None (occurrence: None)
  Receive Date: 20050916
  Receipt Date: 20050908
  Transmission Date: 20060218
  Serious: Yes (Disabling)
  Sender: FDA-Public Use
  Company Number: 2005126180

PATIENT
  Age: 50 Year
  Sex: Male
  Weight: 127.0072 kg

DRUGS (6)
  1. BEXTRA [Suspect]
     Indication: ARTHRITIS
     Dosage: (2 IN 1 D)
     Dates: start: 20010101, end: 20050401
  2. BEXTRA [Suspect]
     Indication: OSTEOARTHRITIS
     Dosage: (2 IN 1 D)
     Dates: start: 20010101, end: 20050401
  3. HUMALOG [Concomitant]
  4. LANTUS [Concomitant]
  5. PLAVIX [Concomitant]
  6. ALL OTHER THERAPEUTIC PRODUCTS (ALL OTHER THERAPEUTIC PRODUCTS) [Concomitant]

REACTIONS (2)
  - ADVERSE EVENT [None]
  - GENERAL PHYSICAL HEALTH DETERIORATION [None]
